FAERS Safety Report 12910959 (Version 1)
Quarter: 2016Q4

REPORT INFORMATION
  Report Type: Spontaneous
  Country: US (occurrence: US)
  Receive Date: 20161104
  Receipt Date: 20161104
  Transmission Date: 20170207
  Serious: Yes (Death, Other)
  Sender: FDA-Public Use
  Company Number: US-GLAXOSMITHKLINE-US2016161713

PATIENT
  Age: 90 Year
  Sex: Female

DRUGS (2)
  1. KERI SHEA BUTTER NOURISHING THERAPY SOFTLY SCENTED CUTANEOUS EMULSION [Suspect]
     Active Substance: SHEA BUTTER
     Indication: DRY SKIN
     Dosage: UNK,AS NEEDED ON LEGS
  2. KERI ORIGINAL [Suspect]
     Active Substance: LANOLIN\MINERAL OIL
     Indication: DRY SKIN
     Dosage: UNK

REACTIONS (1)
  - Death [Fatal]
